FAERS Safety Report 7424709-0 (Version None)
Quarter: 2011Q2

REPORT INFORMATION
  Report Type: 
  Country: None (occurrence: None)
  Receive Date: 20110419
  Receipt Date: 20110415
  Transmission Date: 20111010
  Serious: Yes (Hospitalization)
  Sender: FDA-Public Use
  Company Number: US-ALLERGAN-1105328US

PATIENT
  Age: 78 Year
  Sex: Female
  Weight: 89.8 kg

DRUGS (11)
  1. CYMBALTA [Concomitant]
     Indication: PRODUCT USED FOR UNKNOWN INDICATION
     Dosage: 60 MG, QD
     Route: 048
  2. TRAZODONE [Concomitant]
     Dosage: 100 MG, UNK
     Route: 048
  3. SERTRALINE [Concomitant]
     Indication: PRODUCT USED FOR UNKNOWN INDICATION
     Dosage: 50 MG, QD
     Route: 048
     Dates: start: 20110119
  4. RALOXIFENE HCL [Concomitant]
     Indication: PRODUCT USED FOR UNKNOWN INDICATION
     Dosage: 60 MG, UNK
     Route: 048
  5. LEVOTHYROXINE SODIUM [Concomitant]
     Indication: PRODUCT USED FOR UNKNOWN INDICATION
     Dosage: 0.15 A?G, UNK
     Route: 048
  6. KLONOPIN [Suspect]
     Indication: CONVULSION
     Dosage: 0.5 MG, BID
     Route: 048
     Dates: start: 20110316
  7. BOTULINUM TOXIN TYPE A [Suspect]
     Indication: TORTICOLLIS
     Dosage: UNK
     Route: 030
     Dates: start: 20110316, end: 20110316
  8. VITAMIN D [Concomitant]
     Indication: PRODUCT USED FOR UNKNOWN INDICATION
     Dosage: 1 DF, QD
     Dates: start: 20110223
  9. FERROUS SULFATE TAB [Concomitant]
     Indication: ANAEMIA
     Dosage: 65 MG, BID
     Route: 048
     Dates: start: 20110223
  10. QUETIAPINE [Concomitant]
     Indication: DEPRESSION
     Dosage: 100 MG, TID
     Route: 048
     Dates: start: 20110119
  11. TRIAMCINOLONE [Concomitant]
     Indication: PRODUCT USED FOR UNKNOWN INDICATION
     Dosage: UNK
     Route: 061

REACTIONS (1)
  - MENTAL DISORDER [None]
